FAERS Safety Report 24157148 (Version 1)
Quarter: 2024Q3

REPORT INFORMATION
  Report Type: Spontaneous
  Country: JP (occurrence: JP)
  Receive Date: 20240731
  Receipt Date: 20240731
  Transmission Date: 20241017
  Serious: Yes (Hospitalization, Other)
  Sender: AMGEN
  Company Number: JP-AMGEN-JPNSP2024147384

PATIENT
  Age: 79 Year
  Sex: Female

DRUGS (3)
  1. EVENITY [Suspect]
     Active Substance: ROMOSOZUMAB-AQQG
     Indication: Osteoporosis
     Dosage: 210 MILLIGRAM
     Route: 058
     Dates: start: 202403
  2. VITAMIN D [Concomitant]
     Active Substance: VITAMIN D NOS
  3. VITAMIN K [Concomitant]
     Active Substance: PHYTONADIONE

REACTIONS (19)
  - Fall [Unknown]
  - Gait disturbance [Unknown]
  - Spinal compression fracture [Unknown]
  - Compression fracture [Unknown]
  - Femoral neck fracture [Unknown]
  - Muscle atrophy [Unknown]
  - Bone density decreased [Unknown]
  - Bone deformity [Unknown]
  - Decreased appetite [Unknown]
  - Fatigue [Unknown]
  - Head injury [Unknown]
  - Near death experience [Unknown]
  - Feeding disorder [Unknown]
  - Vomiting [Unknown]
  - Hypertension [Unknown]
  - Body temperature increased [Unknown]
  - Back pain [Unknown]
  - Decubitus ulcer [Unknown]
  - Drug ineffective [Unknown]

NARRATIVE: CASE EVENT DATE: 20240101
